FAERS Safety Report 6346726-4 (Version None)
Quarter: 2009Q3

REPORT INFORMATION
  Report Type: 
  Country: None (occurrence: None)
  Receive Date: 20090904
  Receipt Date: 20090610
  Transmission Date: 20100115
  Serious: Yes (Hospitalization)
  Sender: FDA-Public Use
  Company Number: 2009060029

PATIENT
  Age: 75 Year
  Sex: Female

DRUGS (7)
  1. TORSEMIDE [Suspect]
     Indication: CARDIAC FAILURE CONGESTIVE
     Dosage: 4 MG (4 MG,1 IN 1 D),ORAL
     Route: 048
     Dates: start: 20090527, end: 20090609
  2. LIPITOR [Suspect]
     Indication: HYPERCHOLESTEROLAEMIA
     Dosage: ORAL
     Route: 048
  3. WARFARIN SODIUM [Concomitant]
  4. LAC-B (LACTOBACILLUS ACIDOPHILUS, LYOPHILIZED) [Concomitant]
  5. FERROMIA (SODIUM FERROUS CITRATE) [Concomitant]
  6. MUCOSTA (REBAMIPIDE) [Concomitant]
  7. BROTIZOLAM (BROTIZOLAM) [Concomitant]

REACTIONS (1)
  - PLATELET COUNT DECREASED [None]
